FAERS Safety Report 17102460 (Version 4)
Quarter: 2020Q2

REPORT INFORMATION
  Report Type: Report from Study
  Country: US (occurrence: US)
  Receive Date: 20191202
  Receipt Date: 20200513
  Transmission Date: 20200713
  Serious: No
  Sender: FDA-Public Use
  Company Number: NVSC2019US053298

PATIENT
  Sex: Female

DRUGS (1)
  1. COSENTYX [Suspect]
     Active Substance: SECUKINUMAB
     Indication: PSORIATIC ARTHROPATHY
     Dosage: 300 MG, QW (BENEATH THE SKIN, USUALLY VIA INJECTION)
     Route: 058
     Dates: start: 20191121

REACTIONS (5)
  - Arthralgia [Unknown]
  - Psoriasis [Not Recovered/Not Resolved]
  - Wrong technique in device usage process [Unknown]
  - Venous occlusion [Unknown]
  - Accidental exposure to product [Unknown]
